FAERS Safety Report 5733659-7 (Version None)
Quarter: 2008Q2

REPORT INFORMATION
  Report Type: 
  Country: None (occurrence: None)
  Receive Date: 20080509
  Receipt Date: 20080218
  Transmission Date: 20081010
  Serious: No
  Sender: FDA-Public Use
  Company Number: A0710270A

PATIENT
  Sex: Female

DRUGS (2)
  1. ALTABAX [Suspect]
     Route: 061
  2. UNKNOWN MEDICATION [Concomitant]

REACTIONS (1)
  - PAIN [None]
